FAERS Safety Report 8605218 (Version 2)
Quarter: 2012Q4

REPORT INFORMATION
  Report Type: 
  Country: FI (occurrence: GB)
  Receive Date: 20120608
  Receipt Date: 20120921
  Transmission Date: 20130627
  Serious: Yes (Other)
  Sender: FDA-Public Use
  Company Number: GB-WATSON-2012-09722

PATIENT
  Age: 90 Year
  Sex: Female

DRUGS (4)
  1. KENTERA (WATSON LABORATORIES) [Suspect]
     Indication: HYPERTONIC BLADDER
     Dosage: UNK
     Route: 062
  2. BETAHISTINE [Concomitant]
     Indication: MENIERE^S DISEASE
     Dosage: UNK
     Route: 065
  3. CO-CODAMOL [Concomitant]
     Indication: FRACTURE
     Dosage: UNK
     Route: 065
  4. OMEPRAZOLE [Concomitant]
     Indication: PRODUCT USED FOR UNKNOWN INDICATION
     Dosage: UNK
     Route: 065

REACTIONS (3)
  - Overdose [Recovered/Resolved]
  - Confusional state [Recovered/Resolved]
  - Dry mouth [Recovered/Resolved]
